FAERS Safety Report 5868571-6 (Version None)
Quarter: 2008Q3

REPORT INFORMATION
  Report Type: 
  Country: None (occurrence: None)
  Receive Date: 20080902
  Receipt Date: 20080902
  Transmission Date: 20090109
  Serious: Yes (Other)
  Sender: FDA-Public Use
  Company Number: None

PATIENT
  Age: 40 Year
  Sex: Male
  Weight: 61.6892 kg

DRUGS (1)
  1. LAMICTAL [Suspect]
     Indication: CONVULSION
     Dosage: 150 MG TWICE PER DAY PO
     Route: 048
     Dates: start: 20080601, end: 20080828

REACTIONS (7)
  - ABNORMAL BEHAVIOUR [None]
  - AGITATION [None]
  - ANOREXIA [None]
  - INCONTINENCE [None]
  - MOTOR DYSFUNCTION [None]
  - PERSONALITY CHANGE [None]
  - STEREOTYPY [None]
